FAERS Safety Report 5531451-X (Version None)
Quarter: 2007Q4

REPORT INFORMATION
  Report Type: 
  Country: None (occurrence: None)
  Receive Date: 20071128
  Receipt Date: 20071128
  Transmission Date: 20080405
  Serious: Yes (Other)
  Sender: FDA-Public Use
  Company Number: None

PATIENT
  Age: 60 Year
  Sex: Female
  Weight: 72.5755 kg

DRUGS (1)
  1. CHANTIX [Suspect]
     Indication: SMOKING CESSATION THERAPY
     Dates: start: 20070525, end: 20070726

REACTIONS (6)
  - DEPRESSION [None]
  - EMOTIONAL DISORDER [None]
  - INSOMNIA [None]
  - PAIN [None]
  - PARATHYROID GLAND OPERATION [None]
  - SUICIDAL IDEATION [None]
